FAERS Safety Report 5009198-8 (Version None)
Quarter: 2006Q2

REPORT INFORMATION
  Report Type: 
  Country: None (occurrence: None)
  Receive Date: 20060519
  Receipt Date: 20060512
  Transmission Date: 20061013
  Serious: Yes (Hospitalization, Other)
  Sender: FDA-Public Use
  Company Number: 2006-04-0899

PATIENT
  Age: 68 Year
  Sex: Male

DRUGS (6)
  1. FLUTAMIDE [Suspect]
     Indication: PROSTATE CANCER
     Dosage: 250-375MG QD* ORAL
     Route: 048
     Dates: start: 20051128, end: 20051202
  2. FLUTAMIDE [Suspect]
     Indication: PROSTATE CANCER
     Dosage: 250-375MG QD* ORAL
     Route: 048
     Dates: start: 20051203, end: 20060119
  3. FLUTAMIDE [Suspect]
     Indication: PROSTATE CANCER
     Dosage: 250-375MG QD* ORAL
     Route: 048
     Dates: start: 20060307, end: 20060403
  4. LANSOPRAZOLE [Concomitant]
  5. AMOXICILLIN [Concomitant]
  6. METRONIDAZOLE [Concomitant]

REACTIONS (6)
  - ABDOMINAL PAIN UPPER [None]
  - ANOREXIA [None]
  - DIARRHOEA [None]
  - DUODENAL ULCER [None]
  - DYSPEPSIA [None]
  - VOMITING [None]
